FAERS Safety Report 14662044 (Version 1)
Quarter: 2018Q1

REPORT INFORMATION
  Report Type: Report from Study
  Country: None (occurrence: BR)
  Receive Date: 20180321
  Receipt Date: 20180321
  Transmission Date: 20180509
  Serious: Yes (Other)
  Sender: FDA-Public Use
  Company Number: BR-ABBVIE-18K-020-2289223-00

PATIENT
  Sex: Female
  Weight: 75 kg

DRUGS (7)
  1. HUMIRA [Suspect]
     Active Substance: ADALIMUMAB
     Dosage: LOADING DOSE (WEEK 2)
     Route: 058
  2. HUMIRA [Suspect]
     Active Substance: ADALIMUMAB
     Route: 058
  3. HUMIRA [Suspect]
     Active Substance: ADALIMUMAB
     Dosage: MAINTENANCE DOSE
     Route: 058
     Dates: end: 2014
  4. ZOLPIDEM [Concomitant]
     Active Substance: ZOLPIDEM\ZOLPIDEM TARTRATE
     Indication: INSOMNIA
  5. YAS [Concomitant]
     Indication: MENSTRUAL CYCLE MANAGEMENT
  6. HUMIRA [Suspect]
     Active Substance: ADALIMUMAB
     Route: 058
  7. HUMIRA [Suspect]
     Active Substance: ADALIMUMAB
     Indication: CROHN^S DISEASE
     Dosage: LOADING DOSE (WEEK 0)
     Route: 058
     Dates: start: 2012, end: 2012

REACTIONS (10)
  - Insomnia [Not Recovered/Not Resolved]
  - Abdominal adhesions [Unknown]
  - Peritonitis [Unknown]
  - Injection site pain [Not Recovered/Not Resolved]
  - Coagulation time prolonged [Unknown]
  - Laboratory test abnormal [Unknown]
  - Injection site discomfort [Not Recovered/Not Resolved]
  - Menstruation irregular [Not Recovered/Not Resolved]
  - Crohn^s disease [Not Recovered/Not Resolved]
  - Intestinal perforation [Unknown]

NARRATIVE: CASE EVENT DATE: 2012
